FAERS Safety Report 25407652 (Version 1)
Quarter: 2025Q2

REPORT INFORMATION
  Report Type: Spontaneous
  Country: US (occurrence: US)
  Receive Date: 20250606
  Receipt Date: 20250606
  Transmission Date: 20250717
  Serious: Yes (Other)
  Sender: PFIZER
  Company Number: US-PFIZER INC-202500114257

PATIENT
  Age: 75 Year
  Sex: Female

DRUGS (7)
  1. AZITHROMYCIN [Suspect]
     Active Substance: AZITHROMYCIN
     Indication: Mycobacterium avium complex infection
  2. AZITHROMYCIN [Suspect]
     Active Substance: AZITHROMYCIN
     Dates: start: 202203
  3. BEDAQUILINE [Suspect]
     Active Substance: BEDAQUILINE
     Indication: Mycobacterium avium complex infection
  4. BEDAQUILINE [Suspect]
     Active Substance: BEDAQUILINE
     Dates: start: 202203
  5. CLOFAZIMINE [Suspect]
     Active Substance: CLOFAZIMINE
     Indication: Mycobacterium avium complex infection
  6. CLOFAZIMINE [Suspect]
     Active Substance: CLOFAZIMINE
     Dates: start: 202203
  7. IMIPENEM [Suspect]
     Active Substance: IMIPENEM
     Indication: Mycobacterium avium complex infection
     Dates: start: 202203

REACTIONS (1)
  - Thoracic operation [Unknown]

NARRATIVE: CASE EVENT DATE: 20220901
